FAERS Safety Report 7033379-5 (Version None)
Quarter: 2010Q4

REPORT INFORMATION
  Report Type: 
  Country: None (occurrence: None)
  Receive Date: 20101007
  Receipt Date: 20100929
  Transmission Date: 20110411
  Serious: Yes (Other)
  Sender: FDA-Public Use
  Company Number: US-US-EMD SERONO, INC.-7019580

PATIENT
  Sex: Female

DRUGS (3)
  1. REBIF [Suspect]
     Indication: PRODUCT USED FOR UNKNOWN INDICATION
     Route: 058
     Dates: start: 20100727
  2. REBIF [Suspect]
     Route: 058
     Dates: start: 20100727
  3. SEIZURE MEDICATION [Concomitant]
     Indication: CONVULSION
     Dates: start: 20080101

REACTIONS (5)
  - BLEPHAROSPASM [None]
  - HYPOAESTHESIA [None]
  - INJECTION SITE ERYTHEMA [None]
  - MUSCLE SPASMS [None]
  - PARTIAL SEIZURES [None]
